FAERS Safety Report 17723839 (Version 12)
Quarter: 2021Q3

REPORT INFORMATION
  Report Type: Other
  Country: DE (occurrence: DE)
  Receive Date: 20200429
  Receipt Date: 20210913
  Transmission Date: 20211014
  Serious: Yes (Other)
  Sender: FDA-Public Use
  Company Number: DE-ROCHE-2478421

PATIENT
  Age: 46 Year
  Sex: Female

DRUGS (8)
  1. OCREVUS [Suspect]
     Active Substance: OCRELIZUMAB
     Route: 042
     Dates: start: 20201015
  2. OCREVUS [Suspect]
     Active Substance: OCRELIZUMAB
     Indication: RELAPSING-REMITTING MULTIPLE SCLEROSIS
     Route: 042
     Dates: start: 20191008
  3. OCREVUS [Suspect]
     Active Substance: OCRELIZUMAB
     Route: 042
     Dates: start: 20191022
  4. LOSARTAN. [Concomitant]
     Active Substance: LOSARTAN
     Dosage: TOGETHER WITH  HYDROCHLOROTHIAZIDE
  5. OCREVUS [Suspect]
     Active Substance: OCRELIZUMAB
     Route: 042
     Dates: start: 20210415
  6. OCREVUS [Suspect]
     Active Substance: OCRELIZUMAB
     Route: 042
  7. OCREVUS [Suspect]
     Active Substance: OCRELIZUMAB
     Route: 042
  8. HYDROCHLOROTHIAZIDE. [Concomitant]
     Active Substance: HYDROCHLOROTHIAZIDE
     Dosage: TOGETHER WITH LOSARTAN

REACTIONS (14)
  - Burning sensation [Not Recovered/Not Resolved]
  - Oral herpes [Recovered/Resolved]
  - Product administration error [Unknown]
  - Fatigue [Recovered/Resolved]
  - Anxiety [Recovered/Resolved]
  - Procedural pain [Recovered/Resolved]
  - Rales [Not Recovered/Not Resolved]
  - Neutrophil count increased [Not Recovered/Not Resolved]
  - Vitamin D deficiency [Recovered/Resolved]
  - Alopecia [Not Recovered/Not Resolved]
  - Breast cancer [Recovered/Resolved]
  - Lymphocyte count decreased [Not Recovered/Not Resolved]
  - Immunoglobulins decreased [Not Recovered/Not Resolved]
  - Affect lability [Recovered/Resolved]

NARRATIVE: CASE EVENT DATE: 20200329
